FAERS Safety Report 9832700 (Version 1)
Quarter: 2014Q1

REPORT INFORMATION
  Report Type: Spontaneous
  Country: US (occurrence: US)
  Receive Date: 20140121
  Receipt Date: 20140121
  Transmission Date: 20141002
  Serious: No
  Sender: FDA-Public Use
  Company Number: US-PFIZER INC-2014013332

PATIENT
  Age: 52 Year
  Sex: Female

DRUGS (9)
  1. ZITHROMAX [Suspect]
     Dosage: UNK
  2. DEXTROMETHORPHAN HBR [Suspect]
     Dosage: UNK
  3. DETROL [Suspect]
     Dosage: UNK
  4. ASPARTAME [Suspect]
     Dosage: UNK
  5. CIPRO [Suspect]
     Dosage: UNK
  6. DOXYLAMINE [Suspect]
     Dosage: UNK
  7. ALEVE [Suspect]
     Dosage: UNK
  8. TYLENOL [Suspect]
     Dosage: UNK
  9. PAXIL [Suspect]
     Dosage: UNK

REACTIONS (1)
  - Drug hypersensitivity [Unknown]
